FAERS Safety Report 7011915-2 (Version None)
Quarter: 2010Q3

REPORT INFORMATION
  Report Type: 
  Country: None (occurrence: None)
  Receive Date: 20100924
  Receipt Date: 20100917
  Transmission Date: 20110219
  Serious: Yes (Hospitalization)
  Sender: FDA-Public Use
  Company Number: US-BIOGENIDEC-2010BI030675

PATIENT
  Age: 49 Year
  Sex: Female
  Weight: 163 kg

DRUGS (27)
  1. AVONEX [Suspect]
     Indication: MULTIPLE SCLEROSIS
     Route: 030
     Dates: start: 20100802, end: 20100802
  2. AVONEX [Suspect]
     Route: 030
     Dates: start: 20100809, end: 20100809
  3. NOVOLOG [Concomitant]
     Route: 058
  4. ADVAIR DISKUS 100/50 [Concomitant]
     Route: 048
  5. DOCUSATE SODIUM [Concomitant]
     Route: 048
  6. DULOXETINE [Concomitant]
     Route: 048
  7. FUROSEMIDE [Concomitant]
     Route: 048
  8. GABAPENTIN [Concomitant]
     Route: 048
  9. AQUA FILM TEARS [Concomitant]
  10. LORTAB [Concomitant]
     Indication: PAIN
     Route: 048
  11. SENNA [Concomitant]
     Route: 048
  12. SIMVASTATIN [Concomitant]
     Route: 048
  13. BACLOFEN [Concomitant]
     Route: 048
  14. VENTOLIN HFA [Concomitant]
  15. VITAMIN D [Concomitant]
     Route: 048
  16. ZOLPIDEM [Concomitant]
     Route: 048
  17. CARVEDILOL [Concomitant]
     Route: 048
  18. CYANOCOBALAMIN [Concomitant]
  19. DIOVAN [Concomitant]
     Route: 048
  20. VESICARE [Concomitant]
     Route: 048
  21. CARTIA XT [Concomitant]
     Route: 048
  22. K-DUR [Concomitant]
     Route: 048
  23. DESENEX [Concomitant]
     Route: 061
  24. LANTUS [Concomitant]
     Route: 058
  25. TIZANIDINE HCL [Concomitant]
     Route: 048
  26. AMITRIPTYLINE HCL [Concomitant]
     Indication: PAIN
     Route: 048
  27. TORSEMIDE [Concomitant]
     Route: 048

REACTIONS (6)
  - DIARRHOEA [None]
  - FLUID OVERLOAD [None]
  - INFLUENZA LIKE ILLNESS [None]
  - NEPHROLITHIASIS [None]
  - UROSEPSIS [None]
  - VOMITING [None]
